FAERS Safety Report 10078584 (Version 1)
Quarter: 2014Q2

REPORT INFORMATION
  Report Type: Spontaneous
  Country: BR (occurrence: BR)
  Receive Date: 20140415
  Receipt Date: 20140415
  Transmission Date: 20141212
  Serious: Yes (Hospitalization)
  Sender: FDA-Public Use
  Company Number: BR-ELI_LILLY_AND_COMPANY-BR201404002983

PATIENT
  Age: 43 Year
  Sex: Male
  Weight: 78 kg

DRUGS (2)
  1. HUMALOG MIX 25 [Suspect]
     Indication: TYPE 1 DIABETES MELLITUS
     Dosage: 25 IU, BID
     Route: 058
     Dates: start: 201304
  2. RIVOTRIL [Concomitant]
     Indication: ANXIETY
     Dosage: 0.5 DF, EACH EVENING
     Route: 065

REACTIONS (4)
  - Gastrointestinal infection [Recovered/Resolved]
  - Hyperglycaemia [Recovered/Resolved]
  - Vomiting [Recovered/Resolved]
  - Drug dose omission [Recovered/Resolved]
